FAERS Safety Report 4525692-8 (Version None)
Quarter: 2004Q4

REPORT INFORMATION
  Report Type: 
  Country: None (occurrence: None)
  Receive Date: 20041116
  Receipt Date: 20040828
  Transmission Date: 20050328
  Serious: No
  Sender: FDA-Public Use
  Company Number: S04-USA-03342-01

PATIENT
  Age: 81 Year
  Sex: Male

DRUGS (16)
  1. NAMENDA [Suspect]
     Indication: DEMENTIA
     Dosage: 20 MG QD PO
     Route: 048
     Dates: start: 20040506
  2. NAMENDA [Suspect]
     Indication: PARKINSON'S DISEASE
     Dosage: 20 MG QD PO
     Route: 048
     Dates: start: 20040506
  3. NAMENDA [Suspect]
     Indication: DEMENTIA
     Dosage: 5 MG QD PO
     Route: 048
     Dates: start: 20040415, end: 20040421
  4. NAMENDA [Suspect]
     Indication: PARKINSON'S DISEASE
     Dosage: 5 MG QD PO
     Route: 048
     Dates: start: 20040415, end: 20040421
  5. NAMENDA [Suspect]
     Indication: DEMENTIA
     Dosage: 10 MG QD PO
     Route: 048
     Dates: start: 20040422, end: 20040428
  6. NAMENDA [Suspect]
     Indication: PARKINSON'S DISEASE
     Dosage: 10 MG QD PO
     Route: 048
     Dates: start: 20040422, end: 20040428
  7. NAMENDA [Suspect]
     Indication: DEMENTIA
     Dosage: 15 MG QD PO
     Route: 048
     Dates: start: 20040429, end: 20040505
  8. NAMENDA [Suspect]
     Indication: PARKINSON'S DISEASE
     Dosage: 15 MG QD PO
     Route: 048
     Dates: start: 20040429, end: 20040505
  9. ARICEPT [Concomitant]
  10. SINEMET [Concomitant]
  11. KLONOPIN [Concomitant]
  12. LANOXIN [Concomitant]
  13. ATENOLOL [Concomitant]
  14. ZOCOR [Concomitant]
  15. COUMADIN [Concomitant]
  16. COMTAN [Concomitant]

REACTIONS (3)
  - AGGRESSION [None]
  - AGITATION [None]
  - CHROMATURIA [None]
